FAERS Safety Report 15639090 (Version 1)
Quarter: 2018Q4

REPORT INFORMATION
  Report Type: Spontaneous
  Country: US (occurrence: US)
  Receive Date: 20181120
  Receipt Date: 20181120
  Transmission Date: 20190205
  Serious: No
  Sender: FDA-Public Use
  Company Number: US-PERRIGO-18US008972

PATIENT
  Age: 3 Year
  Sex: Male
  Weight: 14.97 kg

DRUGS (4)
  1. VITAMINS NOS [Concomitant]
     Active Substance: VITAMINS
     Indication: SUPPLEMENTATION THERAPY
     Dosage: UNK, PRN
     Route: 048
  2. POLYETHYLENE GLYCOL 3350. [Suspect]
     Active Substance: POLYETHYLENE GLYCOL 3350
     Dosage: 8.5 TO 17 G, QD
     Route: 048
     Dates: start: 20180830
  3. POLYETHYLENE GLYCOL 3350. [Suspect]
     Active Substance: POLYETHYLENE GLYCOL 3350
     Dosage: 8.5 TO 17 G, QD
     Route: 048
     Dates: start: 20180820, end: 20180829
  4. POLYETHYLENE GLYCOL 3350. [Suspect]
     Active Substance: POLYETHYLENE GLYCOL 3350
     Indication: CONSTIPATION
     Dosage: 8.5 TO 17 G, QD
     Route: 048
     Dates: start: 2016, end: 20180819

REACTIONS (4)
  - Product administered to patient of inappropriate age [Unknown]
  - Incorrect product administration duration [Unknown]
  - Abdominal pain upper [Unknown]
  - Exposure to unspecified agent [Recovered/Resolved]

NARRATIVE: CASE EVENT DATE: 2016
